FAERS Safety Report 16775244 (Version 3)
Quarter: 2019Q4

REPORT INFORMATION
  Report Type: Report from Study
  Country: JP (occurrence: JP)
  Receive Date: 20190905
  Receipt Date: 20191021
  Transmission Date: 20200122
  Serious: Yes (Death, Other)
  Sender: FDA-Public Use
  Company Number: JP-ACTELION-A-CH2019-194996

PATIENT
  Age: 46 Year
  Sex: Female
  Weight: 50.3 kg

DRUGS (16)
  1. PANALDINE [Concomitant]
     Active Substance: TICLOPIDINE HYDROCHLORIDE
  2. BIO-THREE [Concomitant]
     Active Substance: HERBALS
  3. COSPANON [Concomitant]
     Active Substance: FLOPROPIONE
  4. WARFARIN [Concomitant]
     Active Substance: WARFARIN
  5. OXYGEN. [Concomitant]
     Active Substance: OXYGEN
  6. CEREKINON [Concomitant]
     Active Substance: TRIMEBUTINE
  7. KANAMYCIN [Concomitant]
     Active Substance: KANAMYCIN A SULFATE
  8. OPSUMIT [Suspect]
     Active Substance: MACITENTAN
     Indication: PULMONARY ARTERIAL HYPERTENSION
     Dosage: 10 MG, QD
     Route: 048
     Dates: start: 20151027, end: 20160802
  9. TAKEPRON [Concomitant]
     Active Substance: LANSOPRAZOLE
  10. ALDACTONE A [Concomitant]
     Active Substance: SPIRONOLACTONE
  11. URSO [Concomitant]
     Active Substance: URSODIOL
  12. ADCIRCA [Concomitant]
     Active Substance: TADALAFIL
  13. PREDNISOLONE. [Concomitant]
     Active Substance: PREDNISOLONE
  14. ZETIA [Concomitant]
     Active Substance: EZETIMIBE
  15. BAYASPIRIN [Concomitant]
     Active Substance: ASPIRIN
  16. PROMAC [Concomitant]
     Active Substance: NITROFURANTOIN

REACTIONS (5)
  - Anaemia [Not Recovered/Not Resolved]
  - Gamma-glutamyltransferase increased [Fatal]
  - Aspartate aminotransferase increased [Fatal]
  - Hepatic failure [Fatal]
  - Blood bilirubin increased [Fatal]

NARRATIVE: CASE EVENT DATE: 20151124
